FAERS Safety Report 6739440-4 (Version None)
Quarter: 2010Q2

REPORT INFORMATION
  Report Type: 
  Country: None (occurrence: None)
  Receive Date: 20100525
  Receipt Date: 20100510
  Transmission Date: 20101027
  Serious: Yes (Hospitalization)
  Sender: FDA-Public Use
  Company Number: GXKR2010FR05316

PATIENT
  Sex: Male

DRUGS (9)
  1. VANCOMYCIN [Suspect]
     Indication: STAPHYLOCOCCAL BACTERAEMIA
     Dosage: UNK
     Route: 042
     Dates: start: 20090614, end: 20090619
  2. MOPRAL [Suspect]
     Indication: GASTROOESOPHAGEAL REFLUX DISEASE
     Dosage: 1 DF, QD
     Route: 048
     Dates: end: 20090612
  3. PREVISCAN [Suspect]
     Indication: ARRHYTHMIA
     Dosage: UNK
     Route: 048
     Dates: end: 20090612
  4. HEPARIN [Suspect]
     Indication: HAEMODIALYSIS
     Dosage: UNK
     Route: 042
     Dates: start: 20090613, end: 20090616
  5. RIFADIN [Suspect]
     Indication: STAPHYLOCOCCAL BACTERAEMIA
     Dosage: UNK
     Route: 042
     Dates: start: 20090614, end: 20090616
  6. GENTAMICIN [Suspect]
     Indication: STAPHYLOCOCCAL BACTERAEMIA
     Dosage: UNK
     Route: 042
     Dates: start: 20090614, end: 20090614
  7. PERFALGAN [Suspect]
     Dosage: UNK
     Route: 042
     Dates: start: 20090614, end: 20090617
  8. VITAMIN K1 [Suspect]
     Indication: PROPHYLAXIS
     Dosage: 40 MG, QD
     Route: 042
     Dates: start: 20090614, end: 20090614
  9. LASIX [Suspect]
     Indication: CARDIAC FAILURE
     Dosage: UNK
     Route: 042
     Dates: end: 20090612

REACTIONS (3)
  - THROMBECTOMY [None]
  - THROMBOCYTOPENIA [None]
  - VENOUS THROMBOSIS [None]
